FAERS Safety Report 10206607 (Version 14)
Quarter: 2016Q1

REPORT INFORMATION
  Report Type: Spontaneous
  Country: US (occurrence: US)
  Receive Date: 20140530
  Receipt Date: 20160106
  Transmission Date: 20160525
  Serious: Yes (Hospitalization, Other)
  Sender: FDA-Public Use
  Company Number: US-GLAXOSMITHKLINE-A1061033A

PATIENT
  Age: 59 Year
  Sex: Female

DRUGS (7)
  1. FLOLAN [Suspect]
     Active Substance: EPOPROSTENOL SODIUM
     Dosage: UNK
     Dates: start: 20000316
  2. FLOLAN [Suspect]
     Active Substance: EPOPROSTENOL SODIUM
     Indication: PULMONARY ARTERIAL HYPERTENSION
     Dosage: 55 NG/KG/MIN, CONCENTRATION 75,000 NG/ML, VIAL STRENGTH 1.5 MG56 NG/KG/MIN, CONCENTRATION 75,00[...]
     Route: 042
     Dates: start: 20000316
  3. FLOLAN [Suspect]
     Active Substance: EPOPROSTENOL SODIUM
     Dosage: 55 NG/KG/MIN CONTINUOUSLY
     Route: 042
  4. FLOLAN [Suspect]
     Active Substance: EPOPROSTENOL SODIUM
     Dosage: 55 NG/KG/MIN CONTINUOUSLY
  5. FLOLAN [Suspect]
     Active Substance: EPOPROSTENOL SODIUM
     Dosage: 55 NG/KG/MIN CONTINUOUS
     Route: 042
  6. LETAIRIS [Suspect]
     Active Substance: AMBRISENTAN
     Indication: PRODUCT USED FOR UNKNOWN INDICATION
  7. FLOLAN [Suspect]
     Active Substance: EPOPROSTENOL SODIUM
     Dosage: UNK
     Dates: start: 20000316

REACTIONS (14)
  - Surgery [Unknown]
  - Viral infection [Recovered/Resolved]
  - Scab [Recovered/Resolved]
  - Secretion discharge [Unknown]
  - Malaise [Unknown]
  - Lung disorder [Recovering/Resolving]
  - Pneumonitis [Unknown]
  - Immune system disorder [Unknown]
  - Drug dose omission [Unknown]
  - Herpes zoster [Unknown]
  - Biopsy lung [Unknown]
  - Swelling [Unknown]
  - Device related infection [Not Recovered/Not Resolved]
  - Infusion site erythema [Recovered/Resolved]

NARRATIVE: CASE EVENT DATE: 20150531
